FAERS Safety Report 5499164-0 (Version None)
Quarter: 2007Q4

REPORT INFORMATION
  Report Type: 
  Country: None (occurrence: None)
  Receive Date: 20071026
  Receipt Date: 20071022
  Transmission Date: 20080405
  Serious: Yes (Hospitalization)
  Sender: FDA-Public Use
  Company Number: JP-BRISTOL-MYERS SQUIBB COMPANY-13954003

PATIENT
  Sex: Female

DRUGS (2)
  1. PARAPLATIN [Suspect]
     Route: 041
     Dates: start: 20070821
  2. TAXOTERE [Suspect]
     Route: 042
     Dates: start: 20070821

REACTIONS (1)
  - MYOCARDIAL INFARCTION [None]
